FAERS Safety Report 22127251 (Version 1)
Quarter: 2023Q1

REPORT INFORMATION
  Report Type: Spontaneous
  Country: US (occurrence: US)
  Receive Date: 20230322
  Receipt Date: 20230322
  Transmission Date: 20230418
  Serious: No
  Sender: FDA-Public Use
  Company Number: US-ALLERGAN-2231453US

PATIENT

DRUGS (2)
  1. KYBELLA [Suspect]
     Active Substance: DEOXYCHOLIC ACID
     Indication: Fat tissue increased
     Dosage: UNK, SINGLE
     Dates: start: 202205, end: 202205
  2. KYBELLA [Suspect]
     Active Substance: DEOXYCHOLIC ACID
     Dosage: UNK, SINGLE
     Dates: start: 202204, end: 202204

REACTIONS (7)
  - Off label use [Unknown]
  - Condition aggravated [Unknown]
  - Patient dissatisfaction with treatment [Unknown]
  - Discomfort [Unknown]
  - Swelling [Unknown]
  - Contusion [Unknown]
  - Drug ineffective [Unknown]
